FAERS Safety Report 16701717 (Version 1)
Quarter: 2019Q3

REPORT INFORMATION
  Report Type: Spontaneous
  Country: IT (occurrence: IT)
  Receive Date: 20190814
  Receipt Date: 20190814
  Transmission Date: 20191004
  Serious: Yes (Hospitalization, Other)
  Sender: FDA-Public Use
  Company Number: IT-PFIZER INC-2018240567

PATIENT
  Age: 52 Year
  Sex: Female

DRUGS (1)
  1. TAVOR (LORAZEPAM) [Suspect]
     Active Substance: LORAZEPAM
     Dosage: 25 MG (10 DF), SINGLE
     Route: 048
     Dates: start: 20180207, end: 20180207

REACTIONS (2)
  - Sopor [Unknown]
  - Drug abuse [Unknown]

NARRATIVE: CASE EVENT DATE: 20180207
